FAERS Safety Report 13825544 (Version 1)
Quarter: 2017Q3

REPORT INFORMATION
  Report Type: Spontaneous
  Country: FR (occurrence: FR)
  Receive Date: 20170802
  Receipt Date: 20170802
  Transmission Date: 20171127
  Serious: Yes (Other)
  Sender: FDA-Public Use
  Company Number: FR-NOVOPROD-556132

PATIENT
  Age: 9 Year
  Sex: Male
  Weight: 39 kg

DRUGS (2)
  1. NORDITROPIN [Suspect]
     Active Substance: SOMATROPIN
     Dosage: 1.35 MG
     Route: 058
     Dates: start: 20170720
  2. NORDITROPIN [Suspect]
     Active Substance: SOMATROPIN
     Indication: ALBRIGHT^S DISEASE
     Dosage: 1.95 MG, QD
     Route: 058
     Dates: start: 20170603

REACTIONS (3)
  - Seizure [Unknown]
  - Accidental underdose [Unknown]
  - Product use in unapproved indication [Unknown]

NARRATIVE: CASE EVENT DATE: 20170603
